FAERS Safety Report 5080424-2 (Version None)
Quarter: 2006Q3

REPORT INFORMATION
  Report Type: 
  Country: None (occurrence: None)
  Receive Date: 20060815
  Receipt Date: 20060809
  Transmission Date: 20061208
  Serious: Yes (Hospitalization)
  Sender: FDA-Public Use
  Company Number: GB-SANOFI-SYNTHELABO-F01200601816

PATIENT
  Sex: Male
  Weight: 80 kg

DRUGS (3)
  1. FLUOROURACIL [Suspect]
     Dosage: 400 MG/M2 BOLUS FOLLOWED BY A 46 HOUR INFUSION OF 2400 MG/M2 4500 MG
     Route: 041
     Dates: start: 20060505, end: 20060506
  2. FOLINIC ACID [Suspect]
     Route: 041
     Dates: start: 20060505, end: 20060505
  3. OXALIPLATIN [Suspect]
     Indication: COLORECTAL CANCER METASTATIC
     Route: 041
     Dates: start: 20060505, end: 20060505

REACTIONS (3)
  - HYPOMAGNESAEMIA [None]
  - MALAISE [None]
  - PARAESTHESIA [None]
